FAERS Safety Report 10442543 (Version 5)
Quarter: 2015Q1

REPORT INFORMATION
  Report Type: Spontaneous
  Country: FR (occurrence: FR)
  Receive Date: 20140909
  Receipt Date: 20150116
  Transmission Date: 20150720
  Serious: Yes (Hospitalization, Disabling, Other)
  Sender: FDA-Public Use
  Company Number: FR-PFIZER INC-2014244702

PATIENT
  Age: 46 Year
  Sex: Female
  Weight: 49 kg

DRUGS (5)
  1. PLAQUENIL [Suspect]
     Active Substance: HYDROXYCHLOROQUINE SULFATE
     Indication: RHEUMATOID ARTHRITIS
     Dosage: 1 DF, 2X/DAY
     Dates: start: 20110628, end: 20110702
  2. NOVATREX NOS [Suspect]
     Active Substance: AZITHROMYCIN OR METHOTREXATE SODIUM
     Indication: RHEUMATOID ARTHRITIS
     Dosage: 15 MG, WEEKLY
     Dates: start: 20110525, end: 201106
  3. SALAZOPYRINE [Suspect]
     Active Substance: SULFASALAZINE
     Indication: RHEUMATOID ARTHRITIS
     Dosage: 1 DF, 2X/DAY
     Dates: start: 20110628, end: 201107
  4. SOLUPRED [Concomitant]
     Active Substance: PREDNISOLONE
     Dosage: 20 MG, 1X/DAY
     Dates: start: 201106
  5. SOLUPRED [Concomitant]
     Active Substance: PREDNISOLONE
     Dosage: 40 MG, 1X/DAY
     Dates: start: 20110513, end: 201106

REACTIONS (14)
  - Weight decreased [Unknown]
  - Respiratory distress [Recovered/Resolved]
  - Interstitial lung disease [Recovered/Resolved]
  - Hypoxia [Recovered/Resolved]
  - Drug-induced liver injury [Recovering/Resolving]
  - Acute left ventricular failure [Recovered/Resolved]
  - Sinusitis [Unknown]
  - Myocarditis [Recovered/Resolved]
  - Asthenia [Not Recovered/Not Resolved]
  - Transaminases increased [Recovered/Resolved]
  - Dizziness [Unknown]
  - Toxic skin eruption [Recovering/Resolving]
  - Acute generalised exanthematous pustulosis [Recovering/Resolving]
  - Multi-organ failure [Recovering/Resolving]

NARRATIVE: CASE EVENT DATE: 2011
